FAERS Safety Report 19183790 (Version 1)
Quarter: 2021Q2

REPORT INFORMATION
  Report Type: Spontaneous
  Country: US (occurrence: US)
  Receive Date: 20210425
  Receipt Date: 20210425
  Transmission Date: 20210717
  Serious: Yes (Death)
  Sender: FDA-Public Use
  Company Number: None

PATIENT
  Age: 39 Year
  Sex: Female
  Weight: 152.55 kg

DRUGS (2)
  1. PROPOFOL. [Suspect]
     Active Substance: PROPOFOL
     Indication: ENDOTRACHEAL INTUBATION
     Dates: start: 20210419, end: 20210423
  2. NIMBEX [Concomitant]
     Active Substance: CISATRACURIUM BESYLATE
     Dates: start: 20210419, end: 20210424

REACTIONS (5)
  - Hyperthermia [None]
  - Tachycardia [None]
  - Hypotension [None]
  - Propofol infusion syndrome [None]
  - Acute kidney injury [None]

NARRATIVE: CASE EVENT DATE: 20210420
